FAERS Safety Report 8561010-6 (Version None)
Quarter: 2012Q3

REPORT INFORMATION
  Report Type: 
  Country: None (occurrence: None)
  Receive Date: 20120802
  Receipt Date: 20110929
  Transmission Date: 20120928
  Serious: No
  Sender: FDA-Public Use
  Company Number: US-BRISTOL-MYERS SQUIBB COMPANY-15785181

PATIENT
  Age: 19 Year
  Sex: Male
  Weight: 54 kg

DRUGS (3)
  1. REYATAZ [Suspect]
     Indication: HIV INFECTION
     Route: 048
     Dates: start: 20110501, end: 20110501
  2. EPZICOM [Suspect]
     Indication: HIV INFECTION
     Dates: start: 20110501, end: 20110501
  3. NORVIR [Suspect]
     Indication: HIV INFECTION
     Dosage: TABLETS
     Dates: start: 20110501, end: 20110501

REACTIONS (5)
  - REGURGITATION [None]
  - DIARRHOEA [None]
  - DYSPNOEA [None]
  - VOMITING [None]
  - NAUSEA [None]
